FAERS Safety Report 10065301 (Version 3)
Quarter: 2014Q2

REPORT INFORMATION
  Report Type: Spontaneous
  Country: JP (occurrence: JP)
  Receive Date: 20140408
  Receipt Date: 20140430
  Transmission Date: 20141212
  Serious: Yes (Other)
  Sender: FDA-Public Use
  Company Number: PHHY2014JP039757

PATIENT
  Age: 64 Year
  Sex: Female

DRUGS (1)
  1. FEMARA [Suspect]
     Indication: ADJUVANT THERAPY
     Dosage: 2.5 MG, DAILY
     Route: 048
     Dates: start: 201303

REACTIONS (1)
  - Retinal haemorrhage [Unknown]
